FAERS Safety Report 8755935 (Version 8)
Quarter: 2013Q3

REPORT INFORMATION
  Report Type: Spontaneous
  Country: US (occurrence: None)
  Receive Date: 20120814
  Receipt Date: 20130815
  Transmission Date: 20140515
  Serious: Yes (Hospitalization, Other)
  Sender: FDA-Public Use
  Company Number: ADR-2012-01467

PATIENT
  Sex: Female

DRUGS (6)
  1. BACLOFEN [Suspect]
     Indication: MUSCLE SPASTICITY
  2. DILAUDID [Concomitant]
  3. MORPHINE [Concomitant]
  4. XANAFLEX [Concomitant]
  5. OXYCONTIN [Concomitant]
  6. NEURONTIN [Concomitant]

REACTIONS (16)
  - Back pain [None]
  - Inadequate analgesia [None]
  - Local swelling [None]
  - Quality of life decreased [None]
  - Breakthrough pain [None]
  - Drug withdrawal syndrome [None]
  - Paraesthesia [None]
  - Neuropathy peripheral [None]
  - Brain operation [None]
  - Dysstasia [None]
  - Hypokinesia [None]
  - Incontinence [None]
  - Drug ineffective [None]
  - Oedema peripheral [None]
  - Gait disturbance [None]
  - Drug withdrawal syndrome [None]
